FAERS Safety Report 15028446 (Version 1)
Quarter: 2018Q2

REPORT INFORMATION
  Report Type: Spontaneous
  Country: US (occurrence: US)
  Receive Date: 20180619
  Receipt Date: 20180619
  Transmission Date: 20180711
  Serious: Yes (Other)
  Sender: FDA-Public Use
  Company Number: US-GLAXOSMITHKLINE-US2018107674

PATIENT
  Age: 70 Year
  Sex: Male

DRUGS (1)
  1. ROPINIROLE. [Suspect]
     Active Substance: ROPINIROLE
     Dosage: 4 MG, UNK

REACTIONS (3)
  - Hospitalisation [Unknown]
  - Restless legs syndrome [Unknown]
  - Drug ineffective [Unknown]
